FAERS Safety Report 8464672-7 (Version None)
Quarter: 2012Q2

REPORT INFORMATION
  Report Type: 
  Country: None (occurrence: None)
  Receive Date: 20120626
  Receipt Date: 20120615
  Transmission Date: 20120825
  Serious: Yes (Hospitalization, Other)
  Sender: FDA-Public Use
  Company Number: JP-VERTEX PHARMACEUTICALS INC.-AE-2012-006234

PATIENT
  Age: 51 Year
  Sex: Male

DRUGS (16)
  1. TELAVIC (TELAPREVIR) [Suspect]
     Route: 048
     Dates: start: 20120510, end: 20120514
  2. PEG-INTRON [Concomitant]
     Route: 058
     Dates: start: 20120510
  3. TALION [Concomitant]
     Route: 048
     Dates: start: 20120510
  4. CLOBETASOL PROPIONATE [Concomitant]
     Route: 061
     Dates: start: 20120322
  5. TELAVIC (TELAPREVIR) [Suspect]
     Route: 048
     Dates: start: 20120324, end: 20120409
  6. REBETOL [Concomitant]
     Indication: HEPATITIS C
     Route: 048
     Dates: start: 20120315, end: 20120323
  7. REBETOL [Concomitant]
     Route: 048
     Dates: start: 20120510, end: 20120523
  8. REBETOL [Concomitant]
     Route: 048
     Dates: start: 20120524
  9. LANSOPRAZOLE [Concomitant]
     Route: 048
     Dates: start: 20120315, end: 20120419
  10. TELAVIC (TELAPREVIR) [Suspect]
     Route: 048
     Dates: start: 20120410, end: 20120419
  11. LANSOPRAZOLE [Concomitant]
     Route: 048
     Dates: start: 20120510, end: 20120530
  12. LOXOPROFEN [Concomitant]
     Route: 048
     Dates: start: 20120315, end: 20120328
  13. TELAVIC (TELAPREVIR) [Suspect]
     Indication: HEPATITIS C
     Route: 048
     Dates: start: 20120315, end: 20120323
  14. PEG-INTRON [Concomitant]
     Indication: HEPATITIS C
     Route: 051
     Dates: start: 20120315, end: 20120412
  15. REBETOL [Concomitant]
     Route: 048
     Dates: start: 20120324, end: 20120419
  16. TALION [Concomitant]
     Route: 048
     Dates: start: 20120315, end: 20120419

REACTIONS (2)
  - RASH [None]
  - RENAL IMPAIRMENT [None]
